FAERS Safety Report 8229614-8 (Version None)
Quarter: 2012Q1

REPORT INFORMATION
  Report Type: 
  Country: None (occurrence: None)
  Receive Date: 20120322
  Receipt Date: 20120309
  Transmission Date: 20120608
  Serious: Yes (Hospitalization)
  Sender: FDA-Public Use
  Company Number: PHHY2012JP018189

PATIENT
  Age: 50 Year
  Sex: Male

DRUGS (4)
  1. CYCLOSPORINE [Suspect]
     Indication: COLITIS ULCERATIVE
     Route: 048
  2. AZATHIOPRINE [Suspect]
     Indication: COLITIS ULCERATIVE
     Route: 048
  3. PREDNISOLONE [Suspect]
     Indication: COLITIS ULCERATIVE
  4. CYCLOSPORINE [Suspect]
     Dosage: 200 MG, PER DAY

REACTIONS (7)
  - ERYTHROBLAST COUNT DECREASED [None]
  - TRANSFUSION REACTION [None]
  - RETICULOCYTE COUNT DECREASED [None]
  - APLASIA PURE RED CELL [None]
  - ANAEMIA [None]
  - CYTOMEGALOVIRUS INFECTION [None]
  - HAEMOLYSIS [None]
